FAERS Safety Report 6631684-5 (Version None)
Quarter: 2010Q1

REPORT INFORMATION
  Report Type: 
  Country: None (occurrence: None)
  Receive Date: 20100312
  Receipt Date: 20100302
  Transmission Date: 20100710
  Serious: Yes (Other)
  Sender: FDA-Public Use
  Company Number: AU-PFIZER INC-2010026290

PATIENT
  Sex: Female

DRUGS (1)
  1. SINEQUAN [Suspect]

REACTIONS (3)
  - DECREASED APPETITE [None]
  - LIVER DISORDER [None]
  - WEIGHT DECREASED [None]
